FAERS Safety Report 5093685-0 (Version None)
Quarter: 2006Q3

REPORT INFORMATION
  Report Type: 
  Country: None (occurrence: None)
  Receive Date: 20060829
  Receipt Date: 20060815
  Transmission Date: 20061208
  Serious: Yes (Death)
  Sender: FDA-Public Use
  Company Number: US200606001698

PATIENT
  Age: 76 Year
  Sex: Female
  Weight: 59.9 kg

DRUGS (7)
  1. FORTEO [Suspect]
     Indication: OSTEOPOROSIS
     Dosage: 20 UG
     Dates: start: 20051102
  2. FORTEO PEN (FORTEO PEN) PEN, DISPOSABLE [Concomitant]
  3. COUMADIN [Concomitant]
  4. NADOLOL [Concomitant]
  5. LIPITOR [Concomitant]
  6. ASA (ACETYLSALICYTIC ACID) [Concomitant]
  7. DIGOXIN [Concomitant]

REACTIONS (1)
  - HAEMORRHAGE INTRACRANIAL [None]
